FAERS Safety Report 17478182 (Version 1)
Quarter: 2020Q1

REPORT INFORMATION
  Report Type: Spontaneous
  Country: US (occurrence: US)
  Receive Date: 20200228
  Receipt Date: 20200228
  Transmission Date: 20200409
  Serious: No
  Sender: FDA-Public Use
  Company Number: US-SA-2020SA045681

PATIENT

DRUGS (2)
  1. DUPIXENT [Suspect]
     Active Substance: DUPILUMAB
     Indication: PRODUCT USED FOR UNKNOWN INDICATION
     Dosage: 150 MG
     Route: 065
  2. DUPIXENT [Suspect]
     Active Substance: DUPILUMAB
     Dosage: UNK

REACTIONS (3)
  - Headache [Unknown]
  - Nausea [Unknown]
  - Off label use [Unknown]
